FAERS Safety Report 5916737-9 (Version None)
Quarter: 2008Q4

REPORT INFORMATION
  Report Type: 
  Country: None (occurrence: None)
  Receive Date: 20081013
  Receipt Date: 20081001
  Transmission Date: 20090506
  Serious: Yes (Other)
  Sender: FDA-Public Use
  Company Number: US-PFIZER INC-2006150465

PATIENT
  Sex: Male
  Weight: 79.4 kg

DRUGS (18)
  1. CHANTIX [Suspect]
     Indication: SMOKING CESSATION THERAPY
     Dates: start: 20061122
  2. REGLAN [Concomitant]
  3. XANAX [Concomitant]
  4. AVANDIA [Concomitant]
  5. DEXTROAMPHETAMINE [Concomitant]
  6. LEVOTHYROXINE SODIUM [Concomitant]
  7. MORPHINE SULFATE INJ [Concomitant]
  8. PAXIL [Concomitant]
  9. PLAVIX [Concomitant]
  10. NEXIUM [Concomitant]
  11. VYTORIN [Concomitant]
  12. ACETYLSALICYLIC ACID SRT [Concomitant]
  13. FENTANYL [Concomitant]
  14. VITAMIN B [Concomitant]
  15. ALL OTHER THERAPEUTIC PRODUCTS [Concomitant]
  16. MILK THISTLE [Concomitant]
  17. MUCINEX [Concomitant]
  18. BEE POLLEN [Concomitant]

REACTIONS (14)
  - ARTHRALGIA [None]
  - ASTHENIA [None]
  - CONFUSIONAL STATE [None]
  - CONVULSION [None]
  - FALL [None]
  - FLASHBACK [None]
  - IMPAIRED DRIVING ABILITY [None]
  - IMPAIRED WORK ABILITY [None]
  - MALAISE [None]
  - NAUSEA [None]
  - PELVIC PAIN [None]
  - POLLAKIURIA [None]
  - PSYCHOTIC DISORDER [None]
  - SOMNOLENCE [None]
